FAERS Safety Report 11677992 (Version 1)
Quarter: 2015Q4

REPORT INFORMATION
  Report Type: Spontaneous
  Country: US (occurrence: US)
  Receive Date: 20151027
  Receipt Date: 20151027
  Transmission Date: 20160304
  Serious: No
  Sender: FDA-Public Use
  Company Number: US-ELI_LILLY_AND_COMPANY-US201004001719

PATIENT
  Age: 61 Year
  Sex: Female

DRUGS (4)
  1. FORTEO [Suspect]
     Active Substance: TERIPARATIDE
     Dosage: 20 UG, DAILY (1/D)
  2. FORTEO [Suspect]
     Active Substance: TERIPARATIDE
     Indication: OSTEOPOROSIS
     Dosage: 20 UG, DAILY (1/D)
  3. FORTEO [Suspect]
     Active Substance: TERIPARATIDE
     Dosage: 20 UG, DAILY (1/D)
  4. FORTEO [Suspect]
     Active Substance: TERIPARATIDE
     Dosage: 20 UG, DAILY (1/D)
     Dates: end: 20100930

REACTIONS (13)
  - Musculoskeletal pain [Unknown]
  - Hot flush [Unknown]
  - Injection site pain [Unknown]
  - Pain in jaw [Unknown]
  - Weight increased [Not Recovered/Not Resolved]
  - Injection site bruising [Unknown]
  - Neck pain [Unknown]
  - Ear pain [Unknown]
  - Bruxism [Unknown]
  - Fatigue [Not Recovered/Not Resolved]
  - Injection site haemorrhage [Unknown]
  - Headache [Not Recovered/Not Resolved]
  - Middle insomnia [Unknown]

NARRATIVE: CASE EVENT DATE: 201007
